FAERS Safety Report 4840116-9 (Version None)
Quarter: 2005Q4

REPORT INFORMATION
  Report Type: 
  Country: None (occurrence: None)
  Receive Date: 20051125
  Receipt Date: 20051117
  Transmission Date: 20060501
  Serious: Yes (Death)
  Sender: FDA-Public Use
  Company Number: 2005-BP-20379RO

PATIENT
  Age: 53 Year
  Sex: Male

DRUGS (6)
  1. PREDNISONE TAB [Suspect]
     Indication: PROSTATE CANCER
     Dosage: 10 MG PO
     Route: 048
     Dates: start: 20050923
  2. IROFLUVEN (IROFLUVEN) [Suspect]
     Indication: PROSTATE CANCER
     Dosage: 0.45 MG/KG (40.59 MG) DAY 1 AND DAY 8 OF 21 DAY CYCLE, IV
     Route: 042
     Dates: start: 20050923, end: 20051027
  3. TELMISARTAN (TELMISARTAN) [Concomitant]
  4. ANTIBIOTIC (ANTIBIOTICS) [Concomitant]
  5. ERYTHROPOIETIN (ERYTHROPOIETIN) [Concomitant]
  6. IRON DEXTRAN (IRON DEXTRAN) [Concomitant]

REACTIONS (4)
  - CARDIO-RESPIRATORY ARREST [None]
  - CHEST DISCOMFORT [None]
  - LOSS OF CONSCIOUSNESS [None]
  - MALAISE [None]
